FAERS Safety Report 4287883-3 (Version None)
Quarter: 2004Q1

REPORT INFORMATION
  Report Type: 
  Country: None (occurrence: None)
  Receive Date: 20040209
  Receipt Date: 20031021
  Transmission Date: 20041129
  Serious: Yes (Hospitalization)
  Sender: FDA-Public Use
  Company Number: US-GLAXOSMITHKLINE-A0430965A

PATIENT
  Age: 29 Year
  Sex: Female

DRUGS (1)
  1. PAXIL [Suspect]
     Dosage: 37.5MG UNKNOWN
     Route: 048

REACTIONS (1)
  - CONVULSION [None]
